FAERS Safety Report 10261870 (Version 1)
Quarter: 2014Q2

REPORT INFORMATION
  Report Type: Spontaneous
  Country: JP (occurrence: JP)
  Receive Date: 20140626
  Receipt Date: 20140626
  Transmission Date: 20141212
  Serious: Yes (Hospitalization)
  Sender: FDA-Public Use
  Company Number: PHHY2014JP076360

PATIENT
  Age: 20 Year
  Sex: Female

DRUGS (4)
  1. RIFAMPICIN [Suspect]
     Indication: MENINGITIS TUBERCULOUS
     Dosage: 450 MG DAILY
     Route: 048
     Dates: start: 20130717, end: 20131207
  2. ISONIAZID [Suspect]
     Indication: MENINGITIS TUBERCULOUS
     Dosage: 300 MG DAILY
     Route: 048
     Dates: start: 20130617, end: 20131207
  3. PYRAZINAMIDE [Concomitant]
     Indication: MENINGITIS TUBERCULOUS
     Dosage: 1.5 G DAILY
     Dates: start: 20130717, end: 20130909
  4. ETHAMBUTOL [Concomitant]
     Indication: MENINGITIS TUBERCULOUS
     Dosage: 750 MG DAILY
     Dates: start: 20130717, end: 20130806

REACTIONS (5)
  - Coma hepatic [Recovered/Resolved]
  - Altered state of consciousness [Recovered/Resolved]
  - Acute hepatic failure [Recovered/Resolved]
  - Abdominal pain upper [Recovered/Resolved]
  - Nausea [Recovered/Resolved]
